FAERS Safety Report 21821665 (Version 2)
Quarter: 2023Q1

REPORT INFORMATION
  Report Type: Spontaneous
  Country: CA (occurrence: CA)
  Receive Date: 20230105
  Receipt Date: 20230128
  Transmission Date: 20230417
  Serious: Yes (Other)
  Sender: FDA-Public Use
  Company Number: CA-CELLTRION INC.-2020CA022235

PATIENT

DRUGS (18)
  1. INFLECTRA [Suspect]
     Active Substance: INFLIXIMAB-DYYB
     Indication: Crohn^s disease
     Dosage: 400 MG (OR 5 MG/KG) EVERY 8 WEEKS
     Route: 042
     Dates: start: 20200111
  2. INFLECTRA [Suspect]
     Active Substance: INFLIXIMAB-DYYB
     Dosage: 400 MG (OR 5 MG/KG) EVERY 8 WEEKS
     Route: 042
     Dates: start: 20200309
  3. INFLECTRA [Suspect]
     Active Substance: INFLIXIMAB-DYYB
     Dosage: 400 MG (OR 5 MG/KG) EVERY 8 WEEKS
     Route: 042
     Dates: start: 20200505
  4. INFLECTRA [Suspect]
     Active Substance: INFLIXIMAB-DYYB
     Dosage: 400 MG (OR 5 MG/KG) EVERY 8 WEEKS
     Route: 042
     Dates: start: 20200630
  5. INFLECTRA [Suspect]
     Active Substance: INFLIXIMAB-DYYB
     Dosage: 400 MG (OR 5 MG/KG) EVERY 8 WEEKS
     Route: 042
     Dates: start: 20200825
  6. INFLECTRA [Suspect]
     Active Substance: INFLIXIMAB-DYYB
     Dosage: 400 MG (OR 5 MG/KG) EVERY 8 WEEKS
     Route: 042
     Dates: start: 20201021
  7. INFLECTRA [Suspect]
     Active Substance: INFLIXIMAB-DYYB
     Dosage: 400 MG (OR 5 MG/KG) EVERY 8 WEEKS
     Route: 042
     Dates: start: 20201215
  8. INFLECTRA [Suspect]
     Active Substance: INFLIXIMAB-DYYB
     Dosage: 400 MG (OR 5 MG/KG) EVERY 8 WEEKS
     Route: 042
     Dates: start: 20210212
  9. INFLECTRA [Suspect]
     Active Substance: INFLIXIMAB-DYYB
     Dosage: 400 MG (OR 5 MG/KG) EVERY 8 WEEKS
     Route: 042
     Dates: start: 20210604
  10. INFLECTRA [Suspect]
     Active Substance: INFLIXIMAB-DYYB
     Dosage: 400 MG (OR 5 MG/KG) EVERY 8 WEEKS
     Route: 042
     Dates: start: 20210730
  11. INFLECTRA [Suspect]
     Active Substance: INFLIXIMAB-DYYB
     Dosage: 400 MG (OR 5 MG/KG) EVERY 8 WEEKS
     Route: 042
     Dates: start: 20210930
  12. INFLECTRA [Suspect]
     Active Substance: INFLIXIMAB-DYYB
     Dosage: 400 MG (OR 5 MG/KG) EVERY 8 WEEKS
     Route: 042
     Dates: start: 20211126
  13. INFLECTRA [Suspect]
     Active Substance: INFLIXIMAB-DYYB
     Dosage: 400 MG (OR 5 MG/KG) EVERY 8 WEEKS
     Route: 042
     Dates: start: 20220125
  14. INFLECTRA [Suspect]
     Active Substance: INFLIXIMAB-DYYB
     Dosage: 400 MG (OR 5 MG/KG) EVERY 8 WEEKS
     Route: 042
     Dates: start: 20220326
  15. INFLECTRA [Suspect]
     Active Substance: INFLIXIMAB-DYYB
     Dosage: 400 MG (OR 5 MG/KG) EVERY 8 WEEKS
     Route: 042
     Dates: start: 20220520
  16. INFLECTRA [Suspect]
     Active Substance: INFLIXIMAB-DYYB
     Dosage: 400 MG (OR 5 MG/KG) EVERY 8 WEEKS
     Route: 042
     Dates: start: 20220715
  17. INFLECTRA [Suspect]
     Active Substance: INFLIXIMAB-DYYB
     Dosage: 400 MG (OR 5 MG/KG) EVERY 8 WEEKS
     Route: 042
     Dates: start: 20221104
  18. INFLECTRA [Suspect]
     Active Substance: INFLIXIMAB-DYYB
     Dosage: 400 MG (OR 5 MG/KG) EVERY 8 WEEKS
     Route: 042
     Dates: start: 20221104

REACTIONS (11)
  - Infection [Unknown]
  - Drug level above therapeutic [Unknown]
  - Abdominal pain lower [Not Recovered/Not Resolved]
  - Anal fissure [Unknown]
  - Condition aggravated [Recovering/Resolving]
  - Poor venous access [Unknown]
  - Pyrexia [Unknown]
  - Oropharyngeal pain [Unknown]
  - Pain [Unknown]
  - Nasal congestion [Unknown]
  - Renal disorder [Unknown]

NARRATIVE: CASE EVENT DATE: 20200111
